FAERS Safety Report 16168689 (Version 1)
Quarter: 2019Q2

REPORT INFORMATION
  Report Type: Report from Study
  Country: US (occurrence: US)
  Receive Date: 20190408
  Receipt Date: 20190408
  Transmission Date: 20190711
  Serious: No
  Sender: FDA-Public Use
  Company Number: US-IPSEN BIOPHARMACEUTICALS, INC.-2019-05177

PATIENT
  Sex: Female

DRUGS (1)
  1. DYSPORT [Suspect]
     Active Substance: ABOBOTULINUMTOXINA
     Indication: TORTICOLLIS
     Dosage: TOTAL: 500 UNITS (250 UNITS AT TWO SEPARATE LOCATIONS IN CERVICAL PARASPINAL UPPER QUADRANT MUSCLES)
     Route: 030
     Dates: start: 20190123, end: 20190123

REACTIONS (3)
  - Headache [Unknown]
  - Drug ineffective [Unknown]
  - Muscle tightness [Unknown]

NARRATIVE: CASE EVENT DATE: 2019
